FAERS Safety Report 6805568-3 (Version None)
Quarter: 2010Q2

REPORT INFORMATION
  Report Type: 
  Country: None (occurrence: None)
  Receive Date: 20100628
  Receipt Date: 20080124
  Transmission Date: 20101027
  Serious: No
  Sender: FDA-Public Use
  Company Number: US-PFIZER INC-2008003035

PATIENT
  Sex: Female
  Weight: 131.81 kg

DRUGS (4)
  1. XALATAN [Suspect]
     Indication: GLAUCOMA
     Dates: start: 20070101, end: 20080101
  2. LEVOTHYROXINE SODIUM [Concomitant]
  3. NAPROXEN [Concomitant]
  4. ADVIL LIQUI-GELS [Concomitant]

REACTIONS (5)
  - EYE IRRITATION [None]
  - EYE PAIN [None]
  - FOREIGN BODY SENSATION IN EYES [None]
  - OCULAR HYPERAEMIA [None]
  - PRODUCT QUALITY ISSUE [None]
